FAERS Safety Report 8500265-0 (Version None)
Quarter: 2012Q3

REPORT INFORMATION
  Report Type: 
  Country: None (occurrence: None)
  Receive Date: 20120710
  Receipt Date: 20120706
  Transmission Date: 20120928
  Serious: Yes (Disabling, Other)
  Sender: FDA-Public Use
  Company Number: US-PFIZER INC-2010US-36171

PATIENT
  Sex: Male
  Weight: 104 kg

DRUGS (7)
  1. LOPRESSOR [Concomitant]
     Dosage: UNK
  2. LOTENSIN [Concomitant]
     Dosage: UNK
  3. CALAN [Suspect]
     Indication: CARDIAC DISORDER
     Dosage: UNK
     Route: 065
     Dates: start: 20040101
  4. LANOXIN [Concomitant]
     Dosage: UNK
  5. CORDARONE [Concomitant]
     Dosage: UNK
  6. ZOLOFT [Suspect]
     Indication: PERSONALITY DISORDER
  7. ZOLOFT [Suspect]
     Indication: ANXIETY
     Dosage: UNK
     Route: 065
     Dates: start: 20040101

REACTIONS (2)
  - DISABILITY [None]
  - CARDIAC PACEMAKER INSERTION [None]
